FAERS Safety Report 9972214 (Version 1)
Quarter: 2014Q1

REPORT INFORMATION
  Report Type: Report from Study
  Country: US (occurrence: US)
  Receive Date: 20140306
  Receipt Date: 20140306
  Transmission Date: 20141002
  Serious: No
  Sender: FDA-Public Use
  Company Number: US-ABBVIE-13P-163-1151416-00

PATIENT
  Age: 73 Year
  Sex: Female
  Weight: 86.26 kg

DRUGS (2)
  1. HUMIRA [Suspect]
     Indication: PSORIATIC ARTHROPATHY
     Route: 058
     Dates: start: 201308
  2. SULAR [Concomitant]
     Indication: HYPERTENSION
     Route: 048

REACTIONS (2)
  - Ear discomfort [Recovering/Resolving]
  - Nasopharyngitis [Recovering/Resolving]
